FAERS Safety Report 15094383 (Version 1)
Quarter: 2018Q2

REPORT INFORMATION
  Report Type: Report from Study
  Country: US (occurrence: US)
  Receive Date: 20180630
  Receipt Date: 20180630
  Transmission Date: 20180711
  Serious: Yes (Other)
  Sender: FDA-Public Use
  Company Number: US-TEVA-2018-US-915648

PATIENT
  Sex: Female

DRUGS (1)
  1. COPAXONE [Suspect]
     Active Substance: GLATIRAMER ACETATE
     Indication: MULTIPLE SCLEROSIS
     Route: 058
     Dates: start: 20140520

REACTIONS (8)
  - Swelling face [Recovered/Resolved]
  - Burning sensation [Recovered/Resolved]
  - Chills [Unknown]
  - Pharyngeal oedema [Recovered/Resolved]
  - Chest discomfort [Recovered/Resolved]
  - Skin discolouration [Recovered/Resolved]
  - Lip swelling [Recovered/Resolved]
  - Feeling hot [Recovered/Resolved]
